FAERS Safety Report 14266926 (Version 2)
Quarter: 2017Q4

REPORT INFORMATION
  Report Type: Report from Study
  Country: None (occurrence: US)
  Receive Date: 20171211
  Receipt Date: 20171220
  Transmission Date: 20180321
  Serious: Yes (Hospitalization, Other)
  Sender: FDA-Public Use
  Company Number: US-ABBVIE-17K-163-2186102-00

PATIENT
  Age: 38 Year
  Sex: Female

DRUGS (2)
  1. HUMIRA [Suspect]
     Active Substance: ADALIMUMAB
     Indication: CROHN^S DISEASE
     Route: 058
     Dates: end: 2017
  2. PENTASA [Concomitant]
     Active Substance: MESALAMINE
     Indication: PRODUCT USED FOR UNKNOWN INDICATION

REACTIONS (10)
  - Ectopic pregnancy [Unknown]
  - Crohn^s disease [Not Recovered/Not Resolved]
  - Abortion spontaneous [Unknown]
  - Blood triglycerides increased [Not Recovered/Not Resolved]
  - Pain [Recovered/Resolved]
  - Internal haemorrhage [Recovered/Resolved]
  - Menstruation delayed [Recovered/Resolved]
  - Ruptured ectopic pregnancy [Unknown]
  - Peritoneal haemorrhage [Recovered/Resolved]
  - Exposure during pregnancy [Unknown]

NARRATIVE: CASE EVENT DATE: 2017
